FAERS Safety Report 8033473-6 (Version None)
Quarter: 2012Q1

REPORT INFORMATION
  Report Type: 
  Country: None (occurrence: None)
  Receive Date: 20120110
  Receipt Date: 20120110
  Transmission Date: 20120608
  Serious: Yes (Hospitalization)
  Sender: FDA-Public Use
  Company Number: BE-PFIZER INC-2011307267

PATIENT
  Age: 65 Year
  Sex: Female
  Weight: 47.4 kg

DRUGS (9)
  1. EPIRUBICIN HYDROCHLORIDE [Suspect]
     Indication: BREAST CANCER
     Dosage: UNK
     Dates: start: 20080321
  2. EXEMESTANE [Suspect]
     Indication: BREAST CANCER
     Dosage: 25 MG, 1X/DAY
     Route: 048
     Dates: start: 20070703, end: 20080129
  3. TAXOL [Suspect]
     Indication: BREAST CANCER
     Dosage: UNK
     Dates: start: 20080523, end: 20080523
  4. FLUOROURACIL [Suspect]
     Indication: BREAST CANCER
     Dosage: UNK
     Dates: start: 20080321
  5. CYCLOPHOSPHAMIDE [Suspect]
     Indication: BREAST CANCER
     Dosage: UNK
     Dates: start: 20080321
  6. ZOLPIDEM [Concomitant]
     Indication: SUPPORTIVE CARE
     Dosage: UNK
     Dates: start: 20071126
  7. CP-751,871 [Suspect]
     Indication: BREAST CANCER
     Dosage: 1110 MG, CYCLIC, EVERY 3 WEEKS
     Route: 042
     Dates: start: 20070703, end: 20080107
  8. TAXOL [Suspect]
     Dosage: UNK
     Dates: start: 20080530, end: 20080530
  9. XANAX [Concomitant]
     Indication: SUPPORTIVE CARE
     Dosage: UNK
     Dates: start: 20080411

REACTIONS (1)
  - GASTROINTESTINAL INFECTION [None]
